APPROVED DRUG PRODUCT: DIVALPROEX SODIUM
Active Ingredient: DIVALPROEX SODIUM
Strength: EQ 125MG VALPROIC ACID
Dosage Form/Route: CAPSULE, DELAYED REL PELLETS;ORAL
Application: A211505 | Product #001
Applicant: TEVA PHARMACEUTICALS USA INC
Approved: Nov 17, 2020 | RLD: No | RS: No | Type: DISCN